FAERS Safety Report 15377547 (Version 1)
Quarter: 2018Q3

REPORT INFORMATION
  Report Type: Spontaneous
  Country: GB (occurrence: GB)
  Receive Date: 20180913
  Receipt Date: 20180913
  Transmission Date: 20181010
  Serious: Yes (Other)
  Sender: FDA-Public Use
  Company Number: GB-ASTRAZENECA-2018SE97803

PATIENT
  Age: 67 Year
  Sex: Female

DRUGS (16)
  1. SEROQUEL [Suspect]
     Active Substance: QUETIAPINE FUMARATE
     Indication: ANXIETY
     Route: 048
     Dates: start: 20170809
  2. SEROQUEL [Suspect]
     Active Substance: QUETIAPINE FUMARATE
     Indication: BIPOLAR DISORDER
     Route: 048
     Dates: start: 20170809
  3. FLUOXETINE [Concomitant]
     Active Substance: FLUOXETINE HYDROCHLORIDE
     Indication: BIPOLAR DISORDER
  4. LAMOTRIGINE. [Concomitant]
     Active Substance: LAMOTRIGINE
     Indication: BIPOLAR DISORDER
  5. SEROQUEL [Suspect]
     Active Substance: QUETIAPINE FUMARATE
     Indication: ANXIETY
     Route: 048
     Dates: start: 20170908
  6. ALPRAZOLAM. [Concomitant]
     Active Substance: ALPRAZOLAM
  7. SEROQUEL [Suspect]
     Active Substance: QUETIAPINE FUMARATE
     Indication: ANXIETY
     Route: 048
     Dates: start: 2007
  8. SEROQUEL [Suspect]
     Active Substance: QUETIAPINE FUMARATE
     Indication: BIPOLAR DISORDER
     Route: 048
     Dates: start: 20170903
  9. PRIADEL [Concomitant]
     Active Substance: LITHIUM
     Indication: BIPOLAR DISORDER
  10. SEROQUEL [Suspect]
     Active Substance: QUETIAPINE FUMARATE
     Indication: ANXIETY
     Route: 048
     Dates: start: 20170903
  11. SEROQUEL [Suspect]
     Active Substance: QUETIAPINE FUMARATE
     Indication: ANXIETY
     Route: 048
     Dates: start: 2012
  12. SEROQUEL [Suspect]
     Active Substance: QUETIAPINE FUMARATE
     Indication: BIPOLAR DISORDER
     Route: 048
     Dates: start: 2012
  13. ZOPICLONE [Concomitant]
     Active Substance: ZOPICLONE
     Indication: BIPOLAR DISORDER
  14. SEROQUEL [Suspect]
     Active Substance: QUETIAPINE FUMARATE
     Indication: BIPOLAR DISORDER
     Route: 048
     Dates: start: 20170908
  15. SEROQUEL [Suspect]
     Active Substance: QUETIAPINE FUMARATE
     Indication: BIPOLAR DISORDER
     Route: 048
     Dates: start: 2007
  16. ESOMEPRAZOLE [Concomitant]
     Active Substance: ESOMEPRAZOLE
     Indication: GASTROOESOPHAGEAL REFLUX DISEASE

REACTIONS (10)
  - Hypomania [Not Recovered/Not Resolved]
  - Asthma [Unknown]
  - Epilepsy [Unknown]
  - Muscle spasms [Unknown]
  - Psychiatric symptom [Not Recovered/Not Resolved]
  - Emotional distress [Not Recovered/Not Resolved]
  - Dissociative amnesia [Recovered/Resolved]
  - Anger [Unknown]
  - Depression [Not Recovered/Not Resolved]
  - Daydreaming [Unknown]

NARRATIVE: CASE EVENT DATE: 201709
